FAERS Safety Report 4607310-3 (Version None)
Quarter: 2005Q1

REPORT INFORMATION
  Report Type: 
  Country: None (occurrence: None)
  Receive Date: 20050310
  Receipt Date: 20050225
  Transmission Date: 20050727
  Serious: Yes (Death, Hospitalization)
  Sender: FDA-Public Use
  Company Number: 2005BI004111

PATIENT
  Age: 58 Year
  Sex: Male

DRUGS (11)
  1. ZEVALIN [Suspect]
     Indication: NON-HODGKIN'S LYMPHOMA
     Dosage: 1X, IV, 1X; IV, 30 MCI; 1X; IV
     Route: 042
     Dates: start: 20040801, end: 20040801
  2. ZEVALIN [Suspect]
     Indication: NON-HODGKIN'S LYMPHOMA
     Dosage: 1X, IV, 1X; IV, 30 MCI; 1X; IV
     Route: 042
     Dates: start: 20040902, end: 20040902
  3. ZEVALIN [Suspect]
     Indication: NON-HODGKIN'S LYMPHOMA
     Dosage: 1X, IV, 1X; IV, 30 MCI; 1X; IV
     Route: 042
     Dates: start: 20040902, end: 20040902
  4. CARMUSTINE [Suspect]
     Indication: NON-HODGKIN'S LYMPHOMA
  5. ETOPOSIDE [Suspect]
     Indication: NON-HODGKIN'S LYMPHOMA
  6. CYTARABINE [Suspect]
     Indication: NON-HODGKIN'S LYMPHOMA
  7. MELPHALAN (MELPHALAN) [Suspect]
     Indication: NON-HODGKIN'S LYMPHOMA
  8. CYCLOPHOSPHAMIDE [Suspect]
     Indication: NON-HODGKIN'S LYMPHOMA
     Dates: end: 20040701
  9. PREDNISONE [Suspect]
     Indication: NON-HODGKIN'S LYMPHOMA
     Dates: end: 20040701
  10. VINCRISTINE [Suspect]
     Indication: NON-HODGKIN'S LYMPHOMA
     Dates: end: 20040701
  11. DOXORUBICIN (DOXORUBICIN) [Suspect]
     Indication: NON-HODGKIN'S LYMPHOMA
     Dates: end: 20040701

REACTIONS (3)
  - HEPATITIS B [None]
  - RESPIRATORY FAILURE [None]
  - SEPTIC SHOCK [None]
